FAERS Safety Report 21791737 (Version 3)
Quarter: 2023Q4

REPORT INFORMATION
  Report Type: Spontaneous
  Country: US (occurrence: US)
  Receive Date: 20221229
  Receipt Date: 20231205
  Transmission Date: 20240110
  Serious: Yes (Other)
  Sender: FDA-Public Use
  Company Number: US-CELLTRION INC.-2022US021678

PATIENT

DRUGS (12)
  1. TRUXIMA [Suspect]
     Active Substance: RITUXIMAB-ABBS
     Indication: Granulomatosis with polyangiitis
     Dosage: 500 MG [FIRST DOSE]
     Dates: start: 20220920
  2. TRUXIMA [Suspect]
     Active Substance: RITUXIMAB-ABBS
     Dosage: [SECOND DOSE]
     Dates: start: 20221011
  3. TRUXIMA [Suspect]
     Active Substance: RITUXIMAB-ABBS
     Dosage: TRUXIMA WAS PRESCRIBED AS ONE INFUSION EVERY 6 MONTHS
  4. CLONIDINE [Concomitant]
     Active Substance: CLONIDINE
  5. TRAMADOL [Concomitant]
     Active Substance: TRAMADOL\TRAMADOL HYDROCHLORIDE
  6. PANTOPRAZOLE [Concomitant]
     Active Substance: PANTOPRAZOLE
  7. NEBIVOLOL [Concomitant]
     Active Substance: NEBIVOLOL
  8. VITAMIN B12 [Concomitant]
     Active Substance: CYANOCOBALAMIN
  9. VITAMIN D [Concomitant]
     Active Substance: VITAMIN D NOS
  10. CALCIUM [Concomitant]
     Active Substance: CALCIUM
  11. MAGNESIUM [Concomitant]
     Active Substance: MAGNESIUM
  12. NOVOLOG [Concomitant]
     Active Substance: INSULIN ASPART
     Dosage: UNK, PRN

REACTIONS (1)
  - Anaphylactic reaction [Recovered/Resolved]

NARRATIVE: CASE EVENT DATE: 20220921
